FAERS Safety Report 6968361-7 (Version None)
Quarter: 2010Q3

REPORT INFORMATION
  Report Type: 
  Country: None (occurrence: None)
  Receive Date: 20100907
  Receipt Date: 20100831
  Transmission Date: 20110219
  Serious: Yes (Other)
  Sender: FDA-Public Use
  Company Number: FR-BAXTER-2010BH021936

PATIENT
  Age: 77 Year
  Sex: Female

DRUGS (1)
  1. GAMMAGARD LIQUID [Suspect]
     Indication: SECONDARY IMMUNODEFICIENCY
     Route: 042
     Dates: start: 20100811, end: 20100811

REACTIONS (3)
  - CHILLS [None]
  - HYPERTHERMIA [None]
  - OXYGEN SATURATION DECREASED [None]
